FAERS Safety Report 6576798-3 (Version None)
Quarter: 2010Q1

REPORT INFORMATION
  Report Type: 
  Country: None (occurrence: None)
  Receive Date: 20100210
  Receipt Date: 20100203
  Transmission Date: 20100710
  Serious: Yes (Death)
  Sender: FDA-Public Use
  Company Number: US-ROCHE-683806

PATIENT
  Sex: Female

DRUGS (10)
  1. XELODA [Suspect]
     Indication: BREAST CANCER METASTATIC
     Route: 048
  2. XELODA [Suspect]
     Route: 048
  3. AVASTIN [Suspect]
     Indication: BREAST CANCER METASTATIC
     Route: 042
  4. TAXOL [Concomitant]
  5. TAMOXIFEN CITRATE [Concomitant]
  6. CARBOPLATIN [Concomitant]
  7. TAXOTERE [Concomitant]
  8. GEMZAR [Concomitant]
  9. GEMZAR [Concomitant]
  10. NAVELBINE [Concomitant]

REACTIONS (1)
  - DEATH [None]
